FAERS Safety Report 5488633-5 (Version None)
Quarter: 2007Q4

REPORT INFORMATION
  Report Type: 
  Country: None (occurrence: None)
  Receive Date: 20071017
  Receipt Date: 20061117
  Transmission Date: 20080405
  Serious: No
  Sender: FDA-Public Use
  Company Number: A0624048A

PATIENT
  Age: 10 Year
  Sex: Male

DRUGS (2)
  1. CEFTIN [Suspect]
     Indication: DRUG USE FOR UNKNOWN INDICATION
     Dosage: 1TSP TWICE PER DAY
     Route: 048
     Dates: start: 20060905, end: 20060909
  2. NO CONCURRENT MEDICATION [Concomitant]

REACTIONS (6)
  - ASTHENIA [None]
  - DIZZINESS [None]
  - FATIGUE [None]
  - IMMUNE SYSTEM DISORDER [None]
  - OVERDOSE [None]
  - PHARMACEUTICAL PRODUCT COMPLAINT [None]
